FAERS Safety Report 13658097 (Version 1)
Quarter: 2017Q2

REPORT INFORMATION
  Report Type: Spontaneous
  Country: BR (occurrence: BR)
  Receive Date: 20170616
  Receipt Date: 20170616
  Transmission Date: 20170830
  Serious: Yes (Other)
  Sender: FDA-Public Use
  Company Number: BR-ROCHE-1949494

PATIENT
  Age: 77 Year
  Sex: Female

DRUGS (2)
  1. RIVOTRIL [Suspect]
     Active Substance: CLONAZEPAM
     Indication: VERTIGO
     Dosage: 3ML
     Route: 048
  2. RIVOTRIL [Suspect]
     Active Substance: CLONAZEPAM
     Indication: VERTIGO
     Dosage: 2.5MG/ML
     Route: 065

REACTIONS (2)
  - Gastrointestinal disorder [Recovering/Resolving]
  - Bladder disorder [Recovering/Resolving]
